FAERS Safety Report 14702984 (Version 1)
Quarter: 2018Q2

REPORT INFORMATION
  Report Type: Spontaneous
  Country: FR (occurrence: FR)
  Receive Date: 20180402
  Receipt Date: 20180402
  Transmission Date: 20180711
  Serious: Yes (Other)
  Sender: FDA-Public Use
  Company Number: FR-MERCK KGAA-2044868

PATIENT
  Age: 48 Year
  Sex: Female

DRUGS (1)
  1. NOVOTHYROX [Suspect]
     Active Substance: LEVOTHYROXINE SODIUM
     Indication: PRODUCT USED FOR UNKNOWN INDICATION
     Dates: start: 201708

REACTIONS (25)
  - Loss of personal independence in daily activities [None]
  - Tremor [None]
  - Fatigue [None]
  - Hypoaesthesia [None]
  - Social avoidant behaviour [None]
  - Dizziness [None]
  - Impatience [None]
  - Decreased interest [None]
  - Feeling abnormal [None]
  - Hyperhidrosis [None]
  - Irritability [None]
  - Visual impairment [Not Recovered/Not Resolved]
  - Paraesthesia [None]
  - Dyspnoea [None]
  - Aggression [None]
  - Disturbance in attention [None]
  - Apathy [None]
  - Alopecia [None]
  - Arthralgia [None]
  - Depression [None]
  - Emotional disorder [None]
  - Anger [None]
  - Migraine [Not Recovered/Not Resolved]
  - Insomnia [None]
  - Nervousness [None]

NARRATIVE: CASE EVENT DATE: 2017
